FAERS Safety Report 6124913-8 (Version None)
Quarter: 2009Q1

REPORT INFORMATION
  Report Type: 
  Country: None (occurrence: None)
  Receive Date: 20090319
  Receipt Date: 20090312
  Transmission Date: 20090719
  Serious: No
  Sender: FDA-Public Use
  Company Number: US-B.I. PHARMACEUTICALS,INC./RIDGEFIELD-2009-BP-03152BP

PATIENT
  Age: 74 Year
  Sex: Male

DRUGS (6)
  1. CATAPRES-TTS-1 [Suspect]
     Indication: HYPERTENSION
     Route: 061
     Dates: start: 20081216, end: 20090101
  2. BENICAR HCT [Concomitant]
     Indication: BLOOD PRESSURE INCREASED
  3. TOPROL-XL [Concomitant]
     Indication: HEART RATE IRREGULAR
  4. BENZOPRIL [Concomitant]
     Indication: BLOOD PRESSURE INCREASED
  5. AMOPILINE [Concomitant]
  6. TRIPLEX [Concomitant]
     Indication: BLOOD CHOLESTEROL INCREASED

REACTIONS (14)
  - ANOREXIA [None]
  - CHEST PAIN [None]
  - DRY MOUTH [None]
  - DYSGEUSIA [None]
  - DYSPNOEA [None]
  - DYSPNOEA EXERTIONAL [None]
  - EYE SWELLING [None]
  - FEELING ABNORMAL [None]
  - LIP SWELLING [None]
  - NASAL CONGESTION [None]
  - PHARYNGEAL OEDEMA [None]
  - SWOLLEN TONGUE [None]
  - TONGUE DISORDER [None]
  - WEIGHT DECREASED [None]
